FAERS Safety Report 6006969-6 (Version None)
Quarter: 2008Q4

REPORT INFORMATION
  Report Type: 
  Country: None (occurrence: None)
  Receive Date: 20081217
  Receipt Date: 20071206
  Transmission Date: 20090506
  Serious: No
  Sender: FDA-Public Use
  Company Number: US-ASTRAZENECA-2007UW27834

PATIENT
  Age: 59 Year
  Sex: Male
  Weight: 115.7 kg

DRUGS (5)
  1. CRESTOR [Suspect]
     Indication: BLOOD CHOLESTEROL INCREASED
     Route: 048
     Dates: end: 20071101
  2. NEXIUM [Concomitant]
  3. TOPROL-XL [Concomitant]
  4. AVANDIA [Concomitant]
  5. METFORMIN HCL [Concomitant]

REACTIONS (1)
  - THROMBOSIS [None]
